FAERS Safety Report 24398868 (Version 1)
Quarter: 2024Q4

REPORT INFORMATION
  Report Type: Spontaneous
  Country: US (occurrence: US)
  Receive Date: 20241004
  Receipt Date: 20241004
  Transmission Date: 20250115
  Serious: Yes (Hospitalization, Other)
  Sender: IPSEN
  Company Number: US-IPSEN Group, Research and Development-2024-19714

PATIENT
  Sex: Male
  Weight: 63.1 kg

DRUGS (2)
  1. BYLVAY [Suspect]
     Active Substance: ODEVIXIBAT
     Indication: Product used for unknown indication
     Dosage: EVERY MORNING ONCE DAILY, 2 CAPSULES (2400 MCG) TOTAL BY MOUTH
     Route: 048
  2. URSODIOL [Concomitant]
     Active Substance: URSODIOL

REACTIONS (1)
  - Hepatic failure [Unknown]
